FAERS Safety Report 24986697 (Version 1)
Quarter: 2025Q1

REPORT INFORMATION
  Report Type: Spontaneous
  Country: US (occurrence: None)
  Receive Date: 20250218
  Receipt Date: 20250218
  Transmission Date: 20250409
  Serious: Yes (Hospitalization, Other)
  Sender: FDA-CTU
  Company Number: None

PATIENT
  Sex: Female

DRUGS (1)
  1. TOPIRAMATE [Suspect]
     Active Substance: TOPIRAMATE
     Indication: Epilepsy

REACTIONS (4)
  - Kidney infection [None]
  - Nephrolithiasis [None]
  - Nephrectomy [None]
  - Renal failure [None]

NARRATIVE: CASE EVENT DATE: 20210930
